FAERS Safety Report 6570343-4 (Version None)
Quarter: 2010Q1

REPORT INFORMATION
  Report Type: 
  Country: None (occurrence: None)
  Receive Date: 20100204
  Receipt Date: 20100126
  Transmission Date: 20100710
  Serious: Yes (Hospitalization)
  Sender: FDA-Public Use
  Company Number: US-JNJFOC-20100111721

PATIENT
  Sex: Male
  Weight: 90.72 kg

DRUGS (3)
  1. DURAGESIC-100 [Suspect]
     Indication: NEURALGIA
     Route: 062
  2. DURAGESIC-100 [Suspect]
     Route: 062
  3. VICODIN [Concomitant]
     Indication: PAIN
     Route: 048

REACTIONS (4)
  - CARDIAC DISORDER [None]
  - DRUG INEFFECTIVE [None]
  - INSOMNIA [None]
  - MYOCARDIAL INFARCTION [None]
